FAERS Safety Report 22634537 (Version 1)
Quarter: 2023Q2

REPORT INFORMATION
  Report Type: Spontaneous
  Country: AT (occurrence: AT)
  Receive Date: 20230623
  Receipt Date: 20230623
  Transmission Date: 20230722
  Serious: Yes (Other)
  Sender: FDA-Public Use
  Company Number: AT-002147023-NVSC2023AT130153

PATIENT
  Sex: Female

DRUGS (11)
  1. LETROZOLE [Suspect]
     Active Substance: LETROZOLE
     Indication: Breast cancer metastatic
     Dosage: UNK
     Route: 065
     Dates: start: 2019
  2. KISQALI [Suspect]
     Active Substance: RIBOCICLIB
     Indication: Breast cancer metastatic
     Dosage: 2 DOSAGE FORM, QD (1X 2 TABLETS PER DAY)
     Route: 065
     Dates: start: 201912
  3. KISQALI [Suspect]
     Active Substance: RIBOCICLIB
     Dosage: UNK
     Route: 065
     Dates: end: 20191106
  4. KISQALI [Suspect]
     Active Substance: RIBOCICLIB
     Dosage: 200 MG, QD TID (1X 3 TABLETS)
     Route: 065
     Dates: start: 201901, end: 201903
  5. FENTANYL [Concomitant]
     Active Substance: FENTANYL
     Indication: Product used for unknown indication
     Dosage: UNK,Q3D  Q72H (12?G/H, EVERY THREE DAYS)
     Route: 065
     Dates: start: 202206
  6. FENTANYL [Concomitant]
     Active Substance: FENTANYL
     Dosage: UNK, Q72H (25+12?G/H), EVERY THREE DAYS
     Route: 065
     Dates: start: 2019, end: 2021
  7. FENTANYL [Concomitant]
     Active Substance: FENTANYL
     Dosage: UNK, Q72H (25?G/H, EVERY THREE DAYS)
     Route: 065
     Dates: start: 202201
  8. DENOSUMAB [Concomitant]
     Active Substance: DENOSUMAB
     Indication: Product used for unknown indication
     Dosage: UNK
     Route: 065
  9. Novalgin [Concomitant]
     Indication: Product used for unknown indication
     Dosage: UNK, QID
     Route: 065
     Dates: start: 200901
  10. FILGRASTIM [Concomitant]
     Active Substance: FILGRASTIM
     Indication: Product used for unknown indication
     Dosage: UNK, QW (AMPULES) (1 DAY/WEEK)
     Route: 065
  11. GOSERELIN [Concomitant]
     Active Substance: GOSERELIN
     Indication: Breast cancer metastatic
     Dosage: UNK
     Route: 065
     Dates: start: 2019

REACTIONS (9)
  - Metastases to stomach [Unknown]
  - Metastases to skin [Unknown]
  - Liver disorder [Unknown]
  - Neutropenia [Recovering/Resolving]
  - Herpes zoster [Unknown]
  - Tonsillitis [Unknown]
  - Anaemia [Unknown]
  - Fatigue [Unknown]
  - Abdominal pain upper [Unknown]

NARRATIVE: CASE EVENT DATE: 20190401
